FAERS Safety Report 18920238 (Version 1)
Quarter: 2021Q1

REPORT INFORMATION
  Report Type: Spontaneous
  Country: US (occurrence: US)
  Receive Date: 20210222
  Receipt Date: 20210222
  Transmission Date: 20210420
  Serious: No
  Sender: FDA-Public Use
  Company Number: NVSC2021US032727

PATIENT
  Sex: Female

DRUGS (1)
  1. PIQRAY [Suspect]
     Active Substance: ALPELISIB
     Indication: PRODUCT USED FOR UNKNOWN INDICATION
     Dosage: 150 MG, BID
     Route: 065

REACTIONS (9)
  - Skin reaction [Unknown]
  - Urticaria [Unknown]
  - Dry eye [Unknown]
  - Dry skin [Unknown]
  - Eye disorder [Unknown]
  - Chills [Unknown]
  - Stomatitis [Unknown]
  - Illness [Unknown]
  - Pyrexia [Unknown]
